FAERS Safety Report 10534674 (Version 3)
Quarter: 2014Q4

REPORT INFORMATION
  Report Type: Report from Study
  Country: BR (occurrence: BR)
  Receive Date: 20141022
  Receipt Date: 20141113
  Transmission Date: 20150529
  Serious: Yes (Hospitalization)
  Sender: FDA-Public Use
  Company Number: BR-009507513-1410BRA009727

PATIENT
  Age: 0 Day
  Sex: Male
  Weight: 1.61 kg

DRUGS (2)
  1. RALTEGRAVIR POTASSIUM [Suspect]
     Active Substance: RALTEGRAVIR POTASSIUM
     Dosage: 400 MG, UNK
     Route: 064
     Dates: start: 20140808, end: 20141011
  2. LAMIVUDINE AND ZIDOVUDINE [Suspect]
     Active Substance: LAMIVUDINE\ZIDOVUDINE
     Dosage: 1 DF, Q12H
     Route: 064
     Dates: start: 20140808, end: 20141012

REACTIONS (1)
  - Congenital syphilis [Recovered/Resolved]

NARRATIVE: CASE EVENT DATE: 20141012
